FAERS Safety Report 4393193-6 (Version None)
Quarter: 2004Q3

REPORT INFORMATION
  Report Type: 
  Country: None (occurrence: None)
  Receive Date: 20040702
  Receipt Date: 20040628
  Transmission Date: 20050211
  Serious: Yes (Death, Hospitalization)
  Sender: FDA-Public Use
  Company Number: JP-JNJFOC-20040607104

PATIENT
  Age: 62 Year
  Sex: Male

DRUGS (3)
  1. CLADRIBINE [Suspect]
     Indication: MYELODYSPLASTIC SYNDROME
     Dosage: INTRAVENOUS
     Route: 042
  2. BUSULFAN [Suspect]
     Indication: ACUTE MYELOID LEUKAEMIA
  3. ATG (ANTILYMPHOCYTE IMMUNOGLOBULIN (HORSE)) [Suspect]
     Indication: ACUTE MYELOID LEUKAEMIA

REACTIONS (6)
  - CARDIAC FAILURE CONGESTIVE [None]
  - DRUG INTERACTION [None]
  - HEPATOTOXICITY [None]
  - MULTI-ORGAN FAILURE [None]
  - NEUROTOXICITY [None]
  - SEPSIS [None]
